FAERS Safety Report 9744392 (Version 1)
Quarter: 2013Q4

REPORT INFORMATION
  Report Type: Spontaneous
  Country: US (occurrence: US)
  Receive Date: 20131210
  Receipt Date: 20131210
  Transmission Date: 20140711
  Serious: Yes (Hospitalization, Other)
  Sender: FDA-Public Use
  Company Number: US-GILEAD-2013-0089573

PATIENT
  Sex: Female

DRUGS (3)
  1. LETAIRIS [Suspect]
     Indication: PRODUCT USED FOR UNKNOWN INDICATION
     Dosage: 10 MG, QD
     Dates: start: 20090210
  2. ADCIRCA [Concomitant]
  3. REMODULIN [Concomitant]

REACTIONS (3)
  - Renal failure [Unknown]
  - Dyspnoea [Unknown]
  - Hypotension [Unknown]
